FAERS Safety Report 4346851-3 (Version None)
Quarter: 2004Q2

REPORT INFORMATION
  Report Type: 
  Country: None (occurrence: None)
  Receive Date: 20040426
  Receipt Date: 20040416
  Transmission Date: 20050107
  Serious: Yes (Hospitalization)
  Sender: FDA-Public Use
  Company Number: PHBS2004BE05135

PATIENT
  Sex: Female

DRUGS (2)
  1. GLEEVEC [Suspect]
     Indication: CHRONIC MYELOID LEUKAEMIA
     Route: 048
     Dates: start: 20030101
  2. ORAL ANTIDIABETICS [Concomitant]

REACTIONS (2)
  - DECREASED INSULIN REQUIREMENT [None]
  - HYPOGLYCAEMIC COMA [None]
